FAERS Safety Report 10210301 (Version 1)
Quarter: 2014Q2

REPORT INFORMATION
  Report Type: Spontaneous
  Country: US (occurrence: US)
  Receive Date: 20140602
  Receipt Date: 20140602
  Transmission Date: 20141212
  Serious: Yes (Other)
  Sender: FDA-Public Use
  Company Number: US-JNJFOC-20140512615

PATIENT
  Sex: 0

DRUGS (3)
  1. RISPERIDONE [Suspect]
     Indication: SCHIZOPHRENIFORM DISORDER
     Dosage: MEAN DOSE OF 5.2 MG/ DAY IN MALE PATIENTS AND 4.7 MG/ DAY IN FEMALE PATIENTS
     Route: 048
  2. RISPERIDONE [Suspect]
     Indication: SCHIZOAFFECTIVE DISORDER
     Dosage: MEAN DOSE OF 5.2 MG/ DAY IN MALE PATIENTS AND 4.7 MG/ DAY IN FEMALE PATIENTS
     Route: 048
  3. RISPERIDONE [Suspect]
     Indication: SCHIZOPHRENIA
     Dosage: MEAN DOSE OF 5.2 MG/ DAY IN MALE PATIENTS AND 4.7 MG/ DAY IN FEMALE PATIENTS
     Route: 048

REACTIONS (2)
  - Bone density decreased [Unknown]
  - Hyperprolactinaemia [Unknown]
